FAERS Safety Report 8054297-X (Version None)
Quarter: 2012Q1

REPORT INFORMATION
  Report Type: 
  Country: None (occurrence: None)
  Receive Date: 20120118
  Receipt Date: 20120111
  Transmission Date: 20120608
  Serious: Yes (Death, Hospitalization, Other)
  Sender: FDA-Public Use
  Company Number: PHHY2012FR003778

PATIENT
  Age: 44 Year
  Sex: Female

DRUGS (4)
  1. METHOTREXATE [Suspect]
     Indication: PROPHYLAXIS AGAINST GRAFT VERSUS HOST DISEASE
     Dosage: UNK UKN, UNK
     Route: 042
  2. MELPHALAN HYDROCHLORIDE [Concomitant]
     Dosage: 140 MG/M2, UNK
  3. CYCLOSPORINE [Suspect]
     Indication: PROPHYLAXIS AGAINST GRAFT VERSUS HOST DISEASE
     Dosage: UNK UKN, UNK
     Route: 042
  4. BUSULFAN [Concomitant]
     Dosage: UNK UKN, UNK

REACTIONS (13)
  - HUMAN HERPESVIRUS 6 INFECTION [None]
  - INTERSTITIAL LUNG DISEASE [None]
  - EJECTION FRACTION DECREASED [None]
  - TACHYCARDIA [None]
  - DILATATION VENTRICULAR [None]
  - HYPOXIA [None]
  - METASTASES TO LUNG [None]
  - CARDIAC ARREST [None]
  - LEFT VENTRICULAR FAILURE [None]
  - VENTRICULAR HYPOKINESIA [None]
  - PYREXIA [None]
  - ACUTE RESPIRATORY FAILURE [None]
  - MITRAL VALVE INCOMPETENCE [None]
